FAERS Safety Report 15358332 (Version 1)
Quarter: 2018Q3

REPORT INFORMATION
  Report Type: Spontaneous
  Country: US (occurrence: US)
  Receive Date: 20180906
  Receipt Date: 20180906
  Transmission Date: 20181010
  Serious: No
  Sender: FDA-Public Use
  Company Number: US-PERRIGO-18US007146

PATIENT
  Sex: Female
  Weight: 47.17 kg

DRUGS (4)
  1. EVAMIST [Suspect]
     Active Substance: ESTRADIOL
     Dosage: UNKNOWN, UNKNOWN
     Route: 062
  2. EVAMIST [Suspect]
     Active Substance: ESTRADIOL
     Dosage: UNK AMOUNT, SINGLE
     Route: 062
     Dates: start: 20180707, end: 20180707
  3. EVAMIST [Suspect]
     Active Substance: ESTRADIOL
     Indication: MENOPAUSE
     Dosage: 1.53 MG, BID
     Route: 062
     Dates: start: 2011, end: 20180706
  4. EVAMIST [Suspect]
     Active Substance: ESTRADIOL
     Dosage: 1.53 MG, BID
     Route: 062
     Dates: start: 20180707

REACTIONS (2)
  - Inappropriate schedule of drug administration [Unknown]
  - Incorrect dose administered [Recovered/Resolved]

NARRATIVE: CASE EVENT DATE: 2011
